FAERS Safety Report 20667674 (Version 4)
Quarter: 2022Q3

REPORT INFORMATION
  Report Type: Other
  Country: DE (occurrence: None)
  Receive Date: 20220404
  Receipt Date: 20220905
  Transmission Date: 20221027
  Serious: Yes (Other)
  Sender: FDA-Public Use
  Company Number: DE-ROCHE-3013788

PATIENT
  Sex: Female

DRUGS (4)
  1. OCREVUS [Suspect]
     Active Substance: OCRELIZUMAB
     Indication: Relapsing-remitting multiple sclerosis
     Dosage: THEN 600 MG EVERY 6 MONTHS
     Route: 042
     Dates: start: 20210908
  2. OCREVUS [Suspect]
     Active Substance: OCRELIZUMAB
     Route: 042
     Dates: start: 20210908
  3. IBUPROFEN [Concomitant]
     Active Substance: IBUPROFEN
  4. AMITRIPTYLINE HYDROCHLORIDE [Concomitant]
     Active Substance: AMITRIPTYLINE HYDROCHLORIDE
     Dosage: AS NEEDED

REACTIONS (11)
  - Pneumonia [Unknown]
  - COVID-19 [Recovered/Resolved]
  - Pleurisy [Unknown]
  - Disturbance in attention [Recovering/Resolving]
  - Fatigue [Not Recovered/Not Resolved]
  - Viral infection [Recovered/Resolved]
  - Cough [Recovered/Resolved]
  - Headache [Recovered/Resolved]
  - JC polyomavirus test positive [Unknown]
  - Hypoaesthesia [Recovered/Resolved]
  - Uterine cervical metaplasia [Not Recovered/Not Resolved]

NARRATIVE: CASE EVENT DATE: 20220121
